FAERS Safety Report 24841234 (Version 4)
Quarter: 2025Q1

REPORT INFORMATION
  Report Type: Spontaneous
  Country: US (occurrence: US)
  Receive Date: 20250114
  Receipt Date: 20250303
  Transmission Date: 20250409
  Serious: Yes (Hospitalization, Other)
  Sender: DOMPE FARMACEUTICI
  Company Number: US-FARMAPROD-202501-0043

PATIENT
  Age: 60 Year
  Sex: Female

DRUGS (18)
  1. OXERVATE [Suspect]
     Active Substance: CENEGERMIN-BKBJ
     Indication: Neurotrophic keratopathy
     Route: 047
     Dates: start: 20241230
  2. OXERVATE [Suspect]
     Active Substance: CENEGERMIN-BKBJ
  3. OXERVATE [Suspect]
     Active Substance: CENEGERMIN-BKBJ
  4. IRON [Concomitant]
     Active Substance: IRON
     Route: 048
  5. VITAMINS NOS [Concomitant]
     Active Substance: VITAMINS
  6. AMOXAPINE [Concomitant]
     Active Substance: AMOXAPINE
  7. TYRVAYA [Concomitant]
     Active Substance: VARENICLINE TARTRATE
  8. XIIDRA [Concomitant]
     Active Substance: LIFITEGRAST
     Route: 047
  9. TRAZODONE HCL [Concomitant]
     Active Substance: TRAZODONE HYDROCHLORIDE
     Route: 048
  10. TRAMADOL HCL [Concomitant]
     Active Substance: TRAMADOL HYDROCHLORIDE
     Route: 048
  11. VALACYCLOVIR [Concomitant]
     Active Substance: VALACYCLOVIR HYDROCHLORIDE
     Route: 048
  12. SOTALOL [Concomitant]
     Active Substance: SOTALOL
     Route: 048
  13. PILOCARPINE HYDROCHLORIDE [Concomitant]
     Active Substance: PILOCARPINE HYDROCHLORIDE
     Route: 048
  14. ELIQUIS [Concomitant]
     Active Substance: APIXABAN
     Route: 048
  15. GABAPENTIN [Concomitant]
     Active Substance: GABAPENTIN
     Route: 048
  16. OMEPRAZOLE [Concomitant]
     Active Substance: OMEPRAZOLE
     Route: 048
  17. SODIUM CHLORIDE [Concomitant]
     Active Substance: SODIUM CHLORIDE
  18. REFRESH CLASSIC [Concomitant]
     Active Substance: POLYVINYL ALCOHOL\POVIDONE

REACTIONS (14)
  - Chest discomfort [Unknown]
  - Atypical pneumonia [Unknown]
  - Influenza [Unknown]
  - Bronchitis [Unknown]
  - Vision blurred [Unknown]
  - Sleep disorder [Unknown]
  - Anxiety [Unknown]
  - Rash [Unknown]
  - Swelling of eyelid [Unknown]
  - Eyelid pain [Unknown]
  - Eye pruritus [Unknown]
  - Eye pain [Not Recovered/Not Resolved]
  - Ocular hyperaemia [Unknown]
  - Dry eye [Unknown]

NARRATIVE: CASE EVENT DATE: 20250107
